FAERS Safety Report 12658935 (Version 1)
Quarter: 2016Q3

REPORT INFORMATION
  Report Type: Other
  Country: EE (occurrence: EE)
  Receive Date: 20160817
  Receipt Date: 20160817
  Transmission Date: 20161109
  Serious: Yes (Hospitalization, Other)
  Sender: FDA-Public Use
  Company Number: EE-CELLTRION INC.-2016EE000510

PATIENT

DRUGS (9)
  1. TWYNSTA [Concomitant]
     Active Substance: AMLODIPINE BESYLATE\TELMISARTAN
     Indication: HYPERTENSION
     Dosage: 1 DF, DAILY
     Route: 048
  2. ISONIAZID. [Concomitant]
     Active Substance: ISONIAZID
     Indication: PROPHYLAXIS
     Dosage: 300 MG, DAILY
     Route: 048
     Dates: start: 20150910
  3. REMSIMA [Suspect]
     Active Substance: INFLIXIMAB
     Dosage: 435 MG, CYCLIC
     Route: 042
     Dates: start: 20150917, end: 20150917
  4. REMSIMA [Suspect]
     Active Substance: INFLIXIMAB
     Dosage: 435 MG, CYCLIC
     Route: 042
     Dates: start: 20151015, end: 20151015
  5. IMDUR [Concomitant]
     Active Substance: ISOSORBIDE MONONITRATE
     Indication: CARDIAC FAILURE
     Dosage: 60 MG, DAILY
     Route: 048
  6. PENTASA 2G [Concomitant]
     Indication: COLITIS ULCERATIVE
     Dosage: 2 G, BID
     Route: 048
     Dates: start: 20150625
  7. REMSIMA [Suspect]
     Active Substance: INFLIXIMAB
     Indication: COLITIS
     Dosage: 435 MG, CYCLIC
     Route: 042
     Dates: start: 20150903, end: 20150903
  8. ATORVASTATIN [Concomitant]
     Active Substance: ATORVASTATIN
     Indication: HYPERCHOLESTEROLAEMIA
     Dosage: 10 MG, DAILY
     Route: 048
  9. IMURAN [Concomitant]
     Active Substance: AZATHIOPRINE
     Indication: COLITIS ULCERATIVE
     Dosage: 50 MG, BID
     Route: 048
     Dates: start: 20150904

REACTIONS (4)
  - Condition aggravated [Recovering/Resolving]
  - Respiratory failure [Recovering/Resolving]
  - Lung disorder [Unknown]
  - Pulmonary fibrosis [Recovering/Resolving]

NARRATIVE: CASE EVENT DATE: 201510
